FAERS Safety Report 7926739-9 (Version None)
Quarter: 2012Q1

REPORT INFORMATION
  Report Type: 
  Country: None (occurrence: None)
  Receive Date: 20111116
  Receipt Date: 20111102
  Transmission Date: 20120608
  Serious: Yes (Other)
  Sender: FDA-Public Use
  Company Number: 2011P1010099

PATIENT
  Sex: Male

DRUGS (1)
  1. HEPARIN SODIUM [Suspect]
     Dates: start: 20080101, end: 20080101

REACTIONS (14)
  - NAUSEA [None]
  - VOMITING [None]
  - INJURY [None]
  - HYPERHIDROSIS [None]
  - BLOOD PRESSURE DECREASED [None]
  - ANHEDONIA [None]
  - FEAR [None]
  - DYSPNOEA [None]
  - PRODUCT CONTAMINATION [None]
  - PSYCHOGENIC PAIN DISORDER [None]
  - DRUG HYPERSENSITIVITY [None]
  - ANXIETY [None]
  - POOR QUALITY DRUG ADMINISTERED [None]
  - PRODUCT QUALITY ISSUE [None]
